FAERS Safety Report 4814807-X (Version None)
Quarter: 2005Q4

REPORT INFORMATION
  Report Type: 
  Country: None (occurrence: None)
  Receive Date: 20051028
  Receipt Date: 20050104
  Transmission Date: 20060501
  Serious: No
  Sender: FDA-Public Use
  Company Number: US-GLAXOSMITHKLINE-A0539285A

PATIENT
  Age: 74 Year
  Sex: Male

DRUGS (3)
  1. ADVAIR DISKUS 100/50 [Suspect]
     Indication: ASTHMA
     Route: 055
     Dates: start: 20021006
  2. ZYRTEC [Concomitant]
  3. VENTOLIN HFA [Concomitant]

REACTIONS (1)
  - DRUG INEFFECTIVE [None]
